FAERS Safety Report 18564087 (Version 1)
Quarter: 2020Q4

REPORT INFORMATION
  Report Type: Spontaneous
  Country: US (occurrence: US)
  Receive Date: 20201130
  Receipt Date: 20201130
  Transmission Date: 20210114
  Serious: No
  Sender: FDA-Public Use
  Company Number: None

PATIENT
  Age: 28 Year
  Sex: Female
  Weight: 42.75 kg

DRUGS (3)
  1. GENERIC FORMS OF ADDERALL XR [Concomitant]
  2. DEXTROAMPHET SACCHARAT, AMPHET ASPARTATE, DEXTROAMPHET SULFATE AND AMPHET SULFAT [Suspect]
     Active Substance: AMPHETAMINE ASPARTATE\AMPHETAMINE SULFATE\DEXTROAMPHETAMINE SACCHARATE\DEXTROAMPHETAMINE SULFATE
     Indication: ATTENTION DEFICIT HYPERACTIVITY DISORDER
     Dosage: ?          QUANTITY:30 CAPSULE(S);?
     Route: 048
     Dates: start: 20201126
  3. OMEGA-3 FATTY ACID EPA AND DHA SOFTGELS [Concomitant]

REACTIONS (10)
  - Disturbance in attention [None]
  - Lethargy [None]
  - Product measured potency issue [None]
  - Apathy [None]
  - Headache [None]
  - Insomnia [None]
  - Drug ineffective [None]
  - Memory impairment [None]
  - Affective disorder [None]
  - Manufacturing issue [None]

NARRATIVE: CASE EVENT DATE: 20201130
